FAERS Safety Report 7613932-8 (Version None)
Quarter: 2011Q3

REPORT INFORMATION
  Report Type: 
  Country: None (occurrence: None)
  Receive Date: 20110708
  Receipt Date: 20110629
  Transmission Date: 20111222
  Serious: Yes (Disabling, Other)
  Sender: FDA-Public Use
  Company Number: WAES 1103USA03517

PATIENT
  Age: 62 Year
  Sex: Male

DRUGS (7)
  1. ISENTRESS [Suspect]
     Indication: HIV INFECTION
     Dosage: 800 MG/DAILY
     Route: 048
     Dates: start: 20091210, end: 20091214
  2. ZERIT [Concomitant]
  3. REYATAZ [Suspect]
     Dosage: PO, 300 MG DAILY
     Route: 048
     Dates: start: 20091125, end: 20100203
  4. INTELENCE [Suspect]
     Dosage: 400 MG DAILY, PO
     Route: 048
     Dates: start: 20091214, end: 20100203
  5. VIBRAMYCIN (DOXYCYCLINE) [Concomitant]
  6. EPIVIR [Concomitant]
  7. NORVIR [Suspect]
     Indication: HIV INFECTION
     Dosage: 100 MG/DAILY
     Route: 048
     Dates: start: 20091125, end: 20100203

REACTIONS (2)
  - EYE DISORDER [None]
  - UVEITIS [None]
